FAERS Safety Report 13704056 (Version 1)
Quarter: 2017Q2

REPORT INFORMATION
  Report Type: Spontaneous
  Country: US (occurrence: US)
  Receive Date: 20170629
  Receipt Date: 20170629
  Transmission Date: 20170830
  Serious: Yes (Other)
  Sender: FDA-Public Use
  Company Number: PHHY2017US095332

PATIENT
  Sex: Male

DRUGS (3)
  1. PAZOPANIB [Suspect]
     Active Substance: PAZOPANIB
     Dosage: 600 MG, QD (2-WEEK CYCLES)
     Route: 065
  2. PAZOPANIB [Suspect]
     Active Substance: PAZOPANIB
     Indication: BASAL CELL CARCINOMA
     Dosage: 800 MG, QD (2-WEEK CYCLES)
     Route: 065
  3. PAZOPANIB [Suspect]
     Active Substance: PAZOPANIB
     Dosage: 400 MG, QD (2-WEEK CYCLES)
     Route: 065

REACTIONS (5)
  - Atrial fibrillation [Unknown]
  - Palmar-plantar erythrodysaesthesia syndrome [Unknown]
  - Cytopenia [Unknown]
  - Off label use [Unknown]
  - Diarrhoea [Unknown]
